FAERS Safety Report 7046343-7 (Version None)
Quarter: 2010Q4

REPORT INFORMATION
  Report Type: 
  Country: None (occurrence: None)
  Receive Date: 20101014
  Receipt Date: 20101004
  Transmission Date: 20110411
  Serious: Yes (Hospitalization)
  Sender: FDA-Public Use
  Company Number: GXKR2010US11190

PATIENT
  Age: 28 Year
  Sex: Male

DRUGS (14)
  1. FUROSEMIDE (NGX) [Suspect]
     Indication: CARDIAC FAILURE
     Dosage: 40 MG/DAY
     Route: 065
  2. FUROSEMIDE (NGX) [Suspect]
     Dosage: 20 MG ON DAY 65
     Route: 048
  3. FUROSEMIDE (NGX) [Suspect]
     Dosage: 40 MG ON DAY 66
     Route: 042
  4. FUROSEMIDE (NGX) [Suspect]
     Dosage: 20 MG ON DAY 76
     Route: 042
  5. FUROSEMIDE (NGX) [Suspect]
     Dosage: 80 MG ON DAY 81
     Route: 042
  6. FUROSEMIDE (NGX) [Suspect]
     Dosage: 40 MG, EVERY 8 HOURS ON DAY 82 AND 84
  7. LINCOMYCIN (NGX) [Suspect]
     Indication: PHARYNGITIS
     Route: 030
  8. AMOXICILLIN [Concomitant]
     Indication: PHARYNGITIS
  9. ACETAMINOPHEN [Concomitant]
     Indication: PHARYNGITIS
  10. ENALAPRIL MALEATE [Concomitant]
  11. METOPROLOL SUCCINATE [Concomitant]
  12. SULFONAMIDES [Concomitant]
     Route: 061
  13. SPIRONOLACTONE [Concomitant]
  14. DIGOXIN [Concomitant]

REACTIONS (16)
  - BLISTER [None]
  - CONJUNCTIVAL ULCER [None]
  - ERYTHEMA [None]
  - INFECTION [None]
  - MUCOSAL ULCERATION [None]
  - OROPHARYNGEAL BLISTERING [None]
  - OROPHARYNGEAL PAIN [None]
  - PAIN [None]
  - PHARYNGITIS [None]
  - PRURITUS [None]
  - RASH [None]
  - RASH PAPULAR [None]
  - RENAL FAILURE ACUTE [None]
  - SKIN EXFOLIATION [None]
  - STEVENS-JOHNSON SYNDROME [None]
  - THROMBOSIS [None]
